FAERS Safety Report 9226841 (Version 1)
Quarter: 2013Q2

REPORT INFORMATION
  Report Type: Report from Study
  Country: CA (occurrence: CA)
  Receive Date: 20130412
  Receipt Date: 20130412
  Transmission Date: 20140414
  Serious: Yes (Hospitalization)
  Sender: FDA-Public Use
  Company Number: CA-JNJFOC-20130403079

PATIENT
  Age: 64 Year
  Sex: Male
  Weight: 87 kg

DRUGS (1)
  1. REMICADE [Suspect]
     Indication: COLITIS
     Dosage: FREQUENCY: 5-6 WEEKS
     Route: 042
     Dates: start: 20110713

REACTIONS (1)
  - Coronary artery occlusion [Unknown]
